FAERS Safety Report 15280155 (Version 1)
Quarter: 2018Q4

REPORT INFORMATION
  Report Type: Spontaneous
  Country: US (occurrence: US)
  Receive Date: 20180815
  Receipt Date: 20180815
  Transmission Date: 20190204
  Serious: No
  Sender: FDA-Public Use
  Company Number: US-SA-2018SA222668

PATIENT
  Sex: Female

DRUGS (1)
  1. ACT ADVANCED CARE PLAQUE GUARD ANTIGINGIVITIS ANTIPLAQUE CLEAN MINT [Suspect]
     Active Substance: CETYLPYRIDINIUM CHLORIDE

REACTIONS (1)
  - Product residue present [Unknown]
